FAERS Safety Report 5925414-X (Version None)
Quarter: 2008Q4

REPORT INFORMATION
  Report Type: 
  Country: None (occurrence: None)
  Receive Date: 20081021
  Receipt Date: 20081014
  Transmission Date: 20090506
  Serious: Yes (Congenital Anomaly)
  Sender: FDA-Public Use
  Company Number: GB-TEVA-178819ISR

PATIENT
  Sex: Male

DRUGS (2)
  1. LAMOTRIGINE [Suspect]
     Indication: EPILEPSY
     Route: 064
  2. TOPIRAMATE [Suspect]
     Indication: EPILEPSY
     Route: 064

REACTIONS (2)
  - PLAGIOCEPHALY [None]
  - TALIPES [None]
